FAERS Safety Report 4777249-1 (Version None)
Quarter: 2005Q3

REPORT INFORMATION
  Report Type: 
  Country: None (occurrence: None)
  Receive Date: 20050915
  Receipt Date: 20050824
  Transmission Date: 20060218
  Serious: Yes (Hospitalization, Other)
  Sender: FDA-Public Use
  Company Number: US_0410107447

PATIENT
  Age: 47 Year
  Sex: Female
  Weight: 107 kg

DRUGS (23)
  1. ZYPREXA [Suspect]
     Indication: SCHIZOPHRENIA
     Dosage: 10 MG
     Dates: start: 19960101, end: 20050101
  2. DIVALPROEX SODIUM [Concomitant]
  3. BUPROPION [Concomitant]
  4. CITALOPRAM [Concomitant]
  5. MIRTAZAPINE [Concomitant]
  6. PAROXETINE [Concomitant]
  7. SERTRALINE HCL [Concomitant]
  8. GLYBURIDE [Concomitant]
  9. GEODON [Concomitant]
  10. TRAZODONE [Concomitant]
  11. VISTARIL /00058403/ (HYDROXYZINE EMBONATE) [Concomitant]
  12. ANAFRANIL [Concomitant]
  13. AMOXICILLIN [Concomitant]
  14. HYDROCHLOROTHIAZIDE [Concomitant]
  15. ACETAMINOPHEN AND CODEINE NO. 3 [Concomitant]
  16. LISINOPRIL (LISINOPRIL /00894001/) [Concomitant]
  17. GLYBURIDE AND METFORMIN HCL [Concomitant]
  18. HYDROXYZINE PAMOATE [Concomitant]
  19. THIOTHIXENE [Concomitant]
  20. GLUCOVANCE [Concomitant]
  21. NAPROXEN SODIUM [Concomitant]
  22. NORTRIPTYLINE HCL [Concomitant]
  23. APAP W/HYDROCODONE [Concomitant]

REACTIONS (9)
  - ACCIDENT [None]
  - DIABETES MELLITUS [None]
  - GLYCOSYLATED HAEMOGLOBIN INCREASED [None]
  - HAEMOPTYSIS [None]
  - HAEMORRHOIDS [None]
  - OCCULT BLOOD POSITIVE [None]
  - THERMAL BURN [None]
  - VISION BLURRED [None]
  - WEIGHT INCREASED [None]
